FAERS Safety Report 8226421-7 (Version None)
Quarter: 2012Q1

REPORT INFORMATION
  Report Type: 
  Country: None (occurrence: None)
  Receive Date: 20120321
  Receipt Date: 20120314
  Transmission Date: 20120608
  Serious: Yes (Hospitalization, Other)
  Sender: FDA-Public Use
  Company Number: US-CELGENEUS-163-21880-12023115

PATIENT
  Sex: Female

DRUGS (8)
  1. ZIAC [Concomitant]
     Route: 065
  2. HYDROCODONE BITARTRATE AND ACETAMINOPHEN [Concomitant]
     Route: 065
  3. RISPERIDONE [Concomitant]
     Route: 048
  4. ALLOPURINOL [Concomitant]
     Route: 065
  5. REVLIMID [Suspect]
     Dosage: 5 MILLIGRAM
     Route: 048
     Dates: start: 20120131, end: 20120306
  6. DEXAMETHASONE [Concomitant]
     Route: 065
  7. NORCO [Concomitant]
     Route: 065
  8. TRAZODONE HCL [Concomitant]
     Route: 065

REACTIONS (4)
  - BONE DISORDER [None]
  - EYE SWELLING [None]
  - PYREXIA [None]
  - RASH MACULO-PAPULAR [None]
